FAERS Safety Report 23391309 (Version 1)
Quarter: 2024Q1

REPORT INFORMATION
  Report Type: Report from Study
  Country: MX (occurrence: MX)
  Receive Date: 20240111
  Receipt Date: 20240111
  Transmission Date: 20240410
  Serious: Yes (Disabling)
  Sender: FDA-Public Use
  Company Number: MX-ABBVIE-5579912

PATIENT
  Sex: Female
  Weight: 46 kg

DRUGS (3)
  1. HUMIRA [Suspect]
     Active Substance: ADALIMUMAB
     Indication: Juvenile idiopathic arthritis
     Dosage: FORM STRENGTH: 40 MILLIGRAM
     Route: 058
     Dates: start: 20220813
  2. PREDNISONE [Concomitant]
     Active Substance: PREDNISONE
     Indication: Juvenile idiopathic arthritis
  3. METHOTREXATE [Concomitant]
     Active Substance: METHOTREXATE
     Indication: Juvenile idiopathic arthritis

REACTIONS (5)
  - Musculoskeletal stiffness [Recovering/Resolving]
  - Inflammation [Recovering/Resolving]
  - Pain [Recovering/Resolving]
  - Hip deformity [Unknown]
  - Movement disorder [Unknown]

NARRATIVE: CASE EVENT DATE: 20230101
